FAERS Safety Report 4901210-7 (Version None)
Quarter: 2006Q1

REPORT INFORMATION
  Report Type: 
  Country: None (occurrence: None)
  Receive Date: 20060202
  Receipt Date: 20060123
  Transmission Date: 20060701
  Serious: Yes (Other)
  Sender: FDA-Public Use
  Company Number: 2006011919

PATIENT
  Age: 87 Year
  Sex: Female
  Weight: 58.9676 kg

DRUGS (10)
  1. ZOLOFT [Suspect]
     Indication: DEPRESSION
  2. WARFARIN SODIUM [Suspect]
     Indication: THROMBOSIS
     Dosage: 5 MG (5 MG, 1IN 1 D)
     Dates: start: 20051101
  3. OPIOIDS (OPIOIDS) [Suspect]
     Indication: ILL-DEFINED DISORDER
  4. TOPROL-XL [Concomitant]
  5. LIPITOR [Concomitant]
  6. ECOTRIN (ACETYLSALICYLIC ACID) [Concomitant]
  7. PEPCID [Concomitant]
  8. ANTIHYPERTENSIVES (ANTIHYPERTENSIVES) [Concomitant]
  9. PLAVIX [Concomitant]
  10. ASPIRIN [Concomitant]

REACTIONS (6)
  - ASTHENIA [None]
  - CONFUSIONAL STATE [None]
  - DRUG INTERACTION [None]
  - HALLUCINATION [None]
  - SOMNOLENCE [None]
  - THROMBOSIS [None]
